FAERS Safety Report 6334415-1 (Version None)
Quarter: 2009Q3

REPORT INFORMATION
  Report Type: 
  Country: None (occurrence: None)
  Receive Date: 20090831
  Receipt Date: 20070614
  Transmission Date: 20100115
  Serious: Yes (Other)
  Sender: FDA-Public Use
  Company Number: US-ASTRAZENECA-2006UW24156

PATIENT
  Age: 434 Month
  Sex: Female

DRUGS (7)
  1. SEROQUEL [Suspect]
     Indication: INSOMNIA
     Route: 048
     Dates: start: 20030101, end: 20050101
  2. SEROQUEL [Suspect]
     Dosage: 150-300 MG
     Route: 048
     Dates: start: 20040206
  3. ZYPREXA [Suspect]
  4. GEODON [Concomitant]
  5. RISPERDAL [Concomitant]
  6. TRAZODONE HCL [Concomitant]
  7. LISINOPRIL [Concomitant]
     Indication: RENAL IMPAIRMENT
     Dosage: 10-40 MG
     Route: 048
     Dates: start: 20041001

REACTIONS (7)
  - DIABETES MELLITUS [None]
  - DIABETES MELLITUS INADEQUATE CONTROL [None]
  - DIABETIC NEPHROPATHY [None]
  - DIABETIC NEUROPATHY [None]
  - HYPERGLYCAEMIA [None]
  - NEUROPATHY PERIPHERAL [None]
  - TYPE 2 DIABETES MELLITUS [None]
